FAERS Safety Report 4650218-8 (Version None)
Quarter: 2005Q2

REPORT INFORMATION
  Report Type: 
  Country: None (occurrence: None)
  Receive Date: 20050428
  Receipt Date: 20050415
  Transmission Date: 20051028
  Serious: Yes (Hospitalization, Other)
  Sender: FDA-Public Use
  Company Number: KII-2005-0016128

PATIENT
  Age: 16 Year
  Sex: Male

DRUGS (1)
  1. MORPHINE SULFATE [Suspect]
     Dosage: SEE TEXT, ORAL
     Route: 048

REACTIONS (11)
  - BOWEL SOUNDS ABNORMAL [None]
  - DEPRESSED MOOD [None]
  - FAECES DISCOLOURED [None]
  - HEART RATE INCREASED [None]
  - INTENTIONAL MISUSE [None]
  - LETHARGY [None]
  - OVERDOSE [None]
  - OXYGEN SATURATION DECREASED [None]
  - SELF-MEDICATION [None]
  - SOMNOLENCE [None]
  - STOOL ANALYSIS ABNORMAL [None]
